FAERS Safety Report 9157446 (Version 1)
Quarter: 2013Q1

REPORT INFORMATION
  Report Type: Spontaneous
  Country: US (occurrence: None)
  Receive Date: 20130308
  Receipt Date: 20130308
  Transmission Date: 20140127
  Serious: Yes (Other)
  Sender: FDA-Public Use
  Company Number: None

PATIENT
  Sex: Male
  Weight: 68.04 kg

DRUGS (1)
  1. ENOXAPARIN [Suspect]
     Indication: PULMONARY THROMBOSIS
     Dosage: 60 MG/0.6 ML SYR (2) SHOT^S / DAY IN STOMACH
     Dates: start: 20120515, end: 20120607

REACTIONS (1)
  - Urine flow decreased [None]
